FAERS Safety Report 11805267 (Version 1)
Quarter: 2015Q4

REPORT INFORMATION
  Report Type: Spontaneous
  Country: IR (occurrence: IR)
  Receive Date: 20151206
  Receipt Date: 20151206
  Transmission Date: 20160305
  Serious: Yes (Death, Hospitalization)
  Sender: FDA-Public Use
  Company Number: IR-MYLANLABS-2015M1042927

PATIENT

DRUGS (1)
  1. WARFARIN [Suspect]
     Active Substance: WARFARIN
     Indication: AORTIC VALVE REPLACEMENT
     Route: 065

REACTIONS (4)
  - Retroperitoneal haematoma [Not Recovered/Not Resolved]
  - Intra-abdominal haemorrhage [Fatal]
  - Hypovolaemic shock [Fatal]
  - Cardio-respiratory arrest [Not Recovered/Not Resolved]
